FAERS Safety Report 9154581 (Version 1)
Quarter: 2013Q1

REPORT INFORMATION
  Report Type: Spontaneous
  Country: US (occurrence: None)
  Receive Date: 20130305
  Receipt Date: 20130305
  Transmission Date: 20140127
  Serious: No
  Sender: FDA-Public Use
  Company Number: None

PATIENT
  Sex: Female

DRUGS (3)
  1. KLONOPIN [Suspect]
     Dosage: 1 MG TID ORAL
     Route: 048
  2. KLONOPIN [Suspect]
     Dosage: 1 MG TID ORAL
     Route: 048
  3. KLONOPIN [Suspect]
     Dosage: 1 MG TID ORAL
     Route: 048

REACTIONS (1)
  - Formication [None]
